FAERS Safety Report 10209389 (Version 1)
Quarter: 2014Q2

REPORT INFORMATION
  Report Type: Other
  Country: CH (occurrence: CH)
  Receive Date: 20140531
  Receipt Date: 20140531
  Transmission Date: 20141212
  Serious: Yes (Other)
  Sender: FDA-Public Use
  Company Number: CH-LUPIN PHARMACEUTICALS INC.-2014-00902

PATIENT
  Age: 45 Year
  Sex: Male

DRUGS (7)
  1. SUMATRIPTAN [Suspect]
     Indication: MIGRAINE
     Route: 065
  2. SUMATRIPTAN [Interacting]
     Route: 065
  3. VENLAFAXINE [Interacting]
     Indication: DEPRESSION
     Route: 065
  4. ZOLPIDEM [Suspect]
     Indication: SLEEP DISORDER
     Route: 065
  5. CODEINE [Concomitant]
     Indication: PAIN
     Route: 065
  6. PARACETAMOL [Concomitant]
     Indication: PAIN
     Route: 065
  7. METAMIZOLE [Concomitant]
     Indication: PAIN
     Route: 065

REACTIONS (2)
  - Serotonin syndrome [Recovered/Resolved]
  - Drug interaction [Recovered/Resolved]
